FAERS Safety Report 5792618-9 (Version None)
Quarter: 2008Q2

REPORT INFORMATION
  Report Type: 
  Country: None (occurrence: None)
  Receive Date: 20080626
  Receipt Date: 20080616
  Transmission Date: 20081010
  Serious: Yes (Other)
  Sender: FDA-Public Use
  Company Number: DE-PFIZER INC-2008050639

PATIENT
  Sex: Male

DRUGS (1)
  1. SU-011,248 [Suspect]
     Route: 048
     Dates: start: 20080428, end: 20080522

REACTIONS (1)
  - HEPATITIS [None]
